FAERS Safety Report 23156816 (Version 1)
Quarter: 2023Q4

REPORT INFORMATION
  Report Type: Report from Study
  Country: CA (occurrence: CA)
  Receive Date: 20231108
  Receipt Date: 20231108
  Transmission Date: 20240109
  Serious: Yes (Hospitalization, Other)
  Sender: FDA-Public Use
  Company Number: CA-ABBVIE-5351426

PATIENT
  Sex: Female

DRUGS (22)
  1. VENCLEXTA [Suspect]
     Active Substance: VENETOCLAX
     Indication: Acute myeloid leukaemia
     Dosage: FORM STRENGTH: 100 MG?DAILY FOR 14 DAYS PER 28 DAY CYCLE, END DATE 2023
     Route: 048
     Dates: start: 20230124
  2. VENCLEXTA [Suspect]
     Active Substance: VENETOCLAX
     Indication: Acute myeloid leukaemia
     Dosage: DURATION 7 DAYS, FORM STRENGTH: 100 MG
     Route: 048
     Dates: start: 2023, end: 2023
  3. VENCLEXTA [Suspect]
     Active Substance: VENETOCLAX
     Indication: Acute myeloid leukaemia
     Dosage: FREQUENCY TEXT: DAILY FOR 14 DAYS PER 7 DAY CYCLE?LAST ADMIN DATE-2023?FORM STRENGTH: 100 MG
     Route: 048
     Dates: start: 20230708
  4. VENCLEXTA [Suspect]
     Active Substance: VENETOCLAX
     Indication: Acute myeloid leukaemia
     Dosage: FORM STRENGTH: 100 MG
     Route: 048
  5. AZACITIDINE [Concomitant]
     Active Substance: AZACITIDINE
     Indication: Product used for unknown indication
     Dates: start: 20230704, end: 20230707
  6. AZACITIDINE [Concomitant]
     Active Substance: AZACITIDINE
     Indication: Product used for unknown indication
     Dates: start: 20230710, end: 20230712
  7. APO FLUCONAZOLE [Concomitant]
     Indication: Product used for unknown indication
     Dosage: FORM STRENGTH: 100 MILLIGRAM
     Dates: start: 20230321
  8. NITROGLYCERIN [Concomitant]
     Active Substance: NITROGLYCERIN
     Indication: Product used for unknown indication
     Dosage: FORM STRENGTH: 0.4 MILLIGRAM
     Route: 062
  9. PMS VALACYCLOVIR [Concomitant]
     Indication: Product used for unknown indication
     Dosage: FORM STRENGTH: 500 MILLIGRAM
     Dates: start: 20230321
  10. AURO SERTRALINE [Concomitant]
     Indication: Product used for unknown indication
     Dosage: TIME INTERVAL: 0.33333333 DAYS: LAST ADMIN: 2023?FORM STRENGTH: 25 MIILIGRAM
     Route: 048
     Dates: start: 20230704
  11. AURO SERTRALINE [Concomitant]
     Indication: Product used for unknown indication
     Dosage: LAST ADMIN: 2023?FORM STRENGTH: 25 MIILIGRAM
     Route: 048
     Dates: start: 20230331
  12. APO ONDANSETRON [Concomitant]
     Indication: Product used for unknown indication
     Dosage: FORM STRENGTH: 8 MILLIGRAM
     Route: 048
     Dates: start: 20230530
  13. ODAN K [Concomitant]
     Indication: Product used for unknown indication
     Dosage: 20 MEQ
     Route: 048
     Dates: start: 20230321
  14. CANDESARTAN CILEXETIL [Concomitant]
     Active Substance: CANDESARTAN CILEXETIL
     Indication: Product used for unknown indication
     Dosage: LAST ADMIN: AUG 2023?FORM STRENGTH: 8 MILLIGRAM ?FREQUENCY TEXT: ONE AND A HALF TABLETS DAILY
     Route: 048
     Dates: start: 20230821
  15. CANDESARTAN CILEXETIL [Concomitant]
     Active Substance: CANDESARTAN CILEXETIL
     Indication: Product used for unknown indication
     Dosage: LAST ADMIN: 2023?FORM STRENGTH: 8 MILLIGRAM
     Dates: start: 20230714
  16. AMOXICILLIN\CLAVULANATE POTASSIUM [Concomitant]
     Active Substance: AMOXICILLIN\CLAVULANATE POTASSIUM
     Indication: Product used for unknown indication
     Dosage: 875-125 MG
     Route: 048
     Dates: start: 20230801
  17. LEVOTHYROXINE [Concomitant]
     Active Substance: LEVOTHYROXINE
     Indication: Product used for unknown indication
     Dosage: LAST ADMIN: 2023?FORM STRENGTH: 100 MILLIGRAM
     Route: 048
     Dates: start: 20230330
  18. NIVESTYM [Concomitant]
     Active Substance: FILGRASTIM-AAFI
     Indication: Product used for unknown indication
     Dosage: 480MCG/0.8 ML SYRINGE
     Dates: start: 20230530
  19. BETAMETHASONE\CALCIPOTRIENE [Concomitant]
     Active Substance: BETAMETHASONE\CALCIPOTRIENE
     Indication: Product used for unknown indication
     Dosage: 50 MCG-0.5 MG
     Dates: start: 20230426
  20. XARELTO [Concomitant]
     Active Substance: RIVAROXABAN
     Indication: Product used for unknown indication
     Dosage: FORM STRENGTH: 15 MILLIGRAM
     Route: 048
     Dates: start: 20230508, end: 20230508
  21. XARELTO [Concomitant]
     Active Substance: RIVAROXABAN
     Indication: Product used for unknown indication
     Dosage: 20 MILLIGRAM
     Route: 048
     Dates: start: 20230509
  22. SULFATRIM [Concomitant]
     Active Substance: SULFAMETHOXAZOLE\TRIMETHOPRIM
     Indication: Product used for unknown indication
     Dosage: 400MG-80 MG
     Dates: start: 20230321

REACTIONS (8)
  - Haemoglobin decreased [Recovering/Resolving]
  - Malaise [Recovered/Resolved]
  - Pancytopenia [Unknown]
  - Bone marrow failure [Recovered/Resolved]
  - Off label use [Recovered/Resolved]
  - Dyspnoea [Recovered/Resolved with Sequelae]
  - Infection [Unknown]
  - Off label use [Unknown]

NARRATIVE: CASE EVENT DATE: 20230101
